FAERS Safety Report 9288129 (Version 1)
Quarter: 2013Q2

REPORT INFORMATION
  Report Type: Spontaneous
  Country: CH (occurrence: CH)
  Receive Date: 20130514
  Receipt Date: 20130514
  Transmission Date: 20140414
  Serious: Yes (Other)
  Sender: FDA-Public Use
  Company Number: CH-JNJFOC-20130500704

PATIENT
  Age: 21 Year
  Sex: Female

DRUGS (6)
  1. RISPERDAL [Suspect]
     Indication: PRODUCT USED FOR UNKNOWN INDICATION
     Route: 065
     Dates: start: 2011, end: 20120615
  2. TOPAMAX [Suspect]
     Indication: PRODUCT USED FOR UNKNOWN INDICATION
     Route: 065
     Dates: start: 2011, end: 20120615
  3. ATARAX [Suspect]
     Indication: PRODUCT USED FOR UNKNOWN INDICATION
     Route: 065
     Dates: start: 2011, end: 20120615
  4. CIPRALEX [Suspect]
     Indication: DEPRESSION
     Route: 065
     Dates: start: 2011, end: 20120115
  5. SUBUTEX [Suspect]
     Indication: SUBSTANCE ABUSE
     Route: 065
     Dates: start: 2010
  6. TRITTICO [Suspect]
     Indication: PRODUCT USED FOR UNKNOWN INDICATION
     Route: 065
     Dates: start: 2011, end: 20120615

REACTIONS (1)
  - Exposure during pregnancy [Recovered/Resolved]
